FAERS Safety Report 5761682-5 (Version None)
Quarter: 2008Q2

REPORT INFORMATION
  Report Type: 
  Country: None (occurrence: None)
  Receive Date: 20080606
  Receipt Date: 20080526
  Transmission Date: 20081010
  Serious: Yes (Other)
  Sender: FDA-Public Use
  Company Number: US-PFIZER INC-2008038814

PATIENT
  Sex: Female
  Weight: 117.9 kg

DRUGS (4)
  1. CHANTIX [Suspect]
     Indication: SMOKING CESSATION THERAPY
     Route: 048
  2. WELLBUTRIN [Concomitant]
     Route: 048
  3. ALL OTHER THERAPEUTIC PRODUCTS [Concomitant]
     Route: 048
  4. ULTRAM [Concomitant]
     Route: 048
     Dates: start: 20080401

REACTIONS (3)
  - OEDEMA PERIPHERAL [None]
  - SUICIDAL IDEATION [None]
  - WEIGHT INCREASED [None]
